FAERS Safety Report 25583909 (Version 2)
Quarter: 2025Q3

REPORT INFORMATION
  Report Type: Spontaneous
  Country: US (occurrence: US)
  Receive Date: 20250721
  Receipt Date: 20250808
  Transmission Date: 20251021
  Serious: No
  Sender: APOTEX
  Company Number: US-APOTEX-2025AP009039

PATIENT
  Sex: Female

DRUGS (1)
  1. BROMFENAC OPHTHALMIC SOLUTION [Suspect]
     Active Substance: BROMFENAC SODIUM
     Indication: Product used for unknown indication
     Dosage: 1 GTT DROPS, QD
     Route: 047
     Dates: start: 202506

REACTIONS (3)
  - Product dose omission issue [Unknown]
  - Product packaging difficult to open [Unknown]
  - Wrong technique in product usage process [Unknown]

NARRATIVE: CASE EVENT DATE: 20250601
